FAERS Safety Report 4648020-6 (Version None)
Quarter: 2005Q2

REPORT INFORMATION
  Report Type: 
  Country: None (occurrence: None)
  Receive Date: 20050331
  Receipt Date: 20050117
  Transmission Date: 20051028
  Serious: No
  Sender: FDA-Public Use
  Company Number: 05P-163-0286850-00

PATIENT
  Age: 80 Year
  Sex: Male
  Weight: 48.0813 kg

DRUGS (4)
  1. HUMIRA [Suspect]
     Indication: RHEUMATOID ARTHRITIS
     Dosage: 40 MG, 1 IN 2 WK, SUBCUTANEOUS
     Route: 058
     Dates: start: 20040101, end: 20050101
  2. METHOTREXATE SODIUM [Concomitant]
  3. FOLIC ACID [Concomitant]
  4. RABEPRAZOLE SODIUM [Concomitant]

REACTIONS (4)
  - DERMATITIS EXFOLIATIVE [None]
  - DRUG INEFFECTIVE [None]
  - INFECTION [None]
  - SKIN DISCOLOURATION [None]
